FAERS Safety Report 23756074 (Version 2)
Quarter: 2025Q4

REPORT INFORMATION
  Report Type: Spontaneous
  Country: US (occurrence: US)
  Receive Date: 20240418
  Receipt Date: 20251017
  Transmission Date: 20260117
  Serious: Yes (Life-Threatening, Hospitalization)
  Sender: MYLAN
  Company Number: US-MYLANLABS-2024M1034966

PATIENT
  Age: 49 Year
  Sex: Male

DRUGS (20)
  1. EPOPROSTENOL [Suspect]
     Active Substance: EPOPROSTENOL
     Indication: Heparin-induced thrombocytopenia
     Dosage: UNK UNK, QMINUTE (5 NANOGRAM/KG)
     Route: 065
  2. EPOPROSTENOL [Suspect]
     Active Substance: EPOPROSTENOL
     Dosage: UNK UNK, QMINUTE (5 NANOGRAM/KG)
  3. EPOPROSTENOL [Suspect]
     Active Substance: EPOPROSTENOL
     Dosage: UNK UNK, QMINUTE (5 NANOGRAM/KG)
  4. EPOPROSTENOL [Suspect]
     Active Substance: EPOPROSTENOL
     Dosage: UNK UNK, QMINUTE (5 NANOGRAM/KG)
     Route: 065
  5. EPOPROSTENOL [Suspect]
     Active Substance: EPOPROSTENOL
     Dosage: UNK, QMINUTE (30 NANOGRAM/KG)
     Route: 065
  6. EPOPROSTENOL [Suspect]
     Active Substance: EPOPROSTENOL
     Dosage: UNK, QMINUTE (30 NANOGRAM/KG)
  7. EPOPROSTENOL [Suspect]
     Active Substance: EPOPROSTENOL
     Dosage: UNK, QMINUTE (30 NANOGRAM/KG)
  8. EPOPROSTENOL [Suspect]
     Active Substance: EPOPROSTENOL
     Dosage: UNK, QMINUTE (30 NANOGRAM/KG)
     Route: 065
  9. HEPARIN [Suspect]
     Active Substance: HEPARIN SODIUM
     Indication: Thrombosis prophylaxis
     Dosage: UNK (RECEIVED FOR 5 DAYS)
  10. HEPARIN [Suspect]
     Active Substance: HEPARIN SODIUM
     Dosage: UNK (RECEIVED FOR 5 DAYS)
     Route: 058
  11. HEPARIN [Suspect]
     Active Substance: HEPARIN SODIUM
     Dosage: UNK (RECEIVED FOR 5 DAYS)
     Route: 058
  12. HEPARIN [Suspect]
     Active Substance: HEPARIN SODIUM
     Dosage: UNK (RECEIVED FOR 5 DAYS)
  13. MILRINONE [Suspect]
     Active Substance: MILRINONE
     Indication: Cardiac failure acute
     Dosage: UNK
  14. MILRINONE [Suspect]
     Active Substance: MILRINONE
     Dosage: UNK
     Route: 065
  15. MILRINONE [Suspect]
     Active Substance: MILRINONE
     Dosage: UNK
     Route: 065
  16. MILRINONE [Suspect]
     Active Substance: MILRINONE
     Dosage: UNK
  17. DOBUTAMINE [Suspect]
     Active Substance: DOBUTAMINE HYDROCHLORIDE
     Indication: Cardiac failure acute
     Dosage: UNK
  18. DOBUTAMINE [Suspect]
     Active Substance: DOBUTAMINE HYDROCHLORIDE
     Dosage: UNK
     Route: 065
  19. DOBUTAMINE [Suspect]
     Active Substance: DOBUTAMINE HYDROCHLORIDE
     Dosage: UNK
     Route: 065
  20. DOBUTAMINE [Suspect]
     Active Substance: DOBUTAMINE HYDROCHLORIDE
     Dosage: UNK

REACTIONS (4)
  - Cardiogenic shock [Recovering/Resolving]
  - Heparin-induced thrombocytopenia [Recovered/Resolved]
  - Drug ineffective [Unknown]
  - Off label use [Unknown]
